FAERS Safety Report 6303982-6 (Version None)
Quarter: 2009Q3

REPORT INFORMATION
  Report Type: 
  Country: None (occurrence: None)
  Receive Date: 20090810
  Receipt Date: 20090731
  Transmission Date: 20100115
  Serious: Yes (Other)
  Sender: FDA-Public Use
  Company Number: JP-PFIZER INC-2009249911

PATIENT

DRUGS (10)
  1. MEDROL [Suspect]
     Indication: APLASTIC ANAEMIA
     Dosage: 8MG/DAY
     Route: 048
     Dates: start: 20090514
  2. MEDROL [Suspect]
     Dosage: 4 MG, 2X/DAY
  3. MEDROL [Suspect]
     Dosage: 12MG AM AND 4MG PM
     Route: 048
     Dates: start: 20090401
  4. NEORAL [Concomitant]
     Route: 048
  5. TAKEPRON [Concomitant]
     Route: 048
  6. LASIX [Concomitant]
     Route: 048
  7. PRIMOBOLAN [Concomitant]
     Route: 048
  8. PERSANTINE [Concomitant]
     Route: 048
  9. MARZULENE S [Concomitant]
     Route: 048
  10. MAGNESIUM OXIDE [Concomitant]
     Route: 048

REACTIONS (4)
  - CUSHINGOID [None]
  - LIVER FUNCTION TEST ABNORMAL [None]
  - OEDEMA [None]
  - PURPURA [None]
